FAERS Safety Report 21974837 (Version 1)
Quarter: 2023Q1

REPORT INFORMATION
  Report Type: Spontaneous
  Country: US (occurrence: US)
  Receive Date: 20230209
  Receipt Date: 20230209
  Transmission Date: 20230417
  Serious: Yes (Death, Hospitalization)
  Sender: FDA-Public Use
  Company Number: US-BAUSCH-BL-2023-002194

PATIENT
  Age: 67 Year
  Sex: Male

DRUGS (26)
  1. DILTIAZEM [Suspect]
     Active Substance: DILTIAZEM
     Indication: Product used for unknown indication
     Dosage: INGESTION
     Route: 048
  2. DILTIAZEM [Suspect]
     Active Substance: DILTIAZEM
     Route: 050
  3. METFORMIN [Suspect]
     Active Substance: METFORMIN HYDROCHLORIDE
     Indication: Product used for unknown indication
     Dosage: INGESTION
     Route: 048
  4. METFORMIN [Suspect]
     Active Substance: METFORMIN HYDROCHLORIDE
     Route: 050
  5. METOPROLOL [Suspect]
     Active Substance: METOPROLOL
     Indication: Product used for unknown indication
     Dosage: INGESTION
     Route: 048
  6. METOPROLOL [Suspect]
     Active Substance: METOPROLOL
     Route: 050
  7. BISOPROLOL [Suspect]
     Active Substance: BISOPROLOL
     Indication: Product used for unknown indication
     Dosage: INGESTION
     Route: 048
  8. BISOPROLOL [Suspect]
     Active Substance: BISOPROLOL
     Route: 050
  9. LISINOPRIL [Suspect]
     Active Substance: LISINOPRIL
     Indication: Product used for unknown indication
     Dosage: INGESTION
     Route: 048
  10. LISINOPRIL [Suspect]
     Active Substance: LISINOPRIL
     Route: 050
  11. COCAINE [Suspect]
     Active Substance: COCAINE
     Indication: Product used for unknown indication
     Dosage: INGESTION
     Route: 048
  12. COCAINE [Suspect]
     Active Substance: COCAINE
     Route: 050
  13. ALCOHOL [Suspect]
     Active Substance: ALCOHOL
     Indication: Product used for unknown indication
     Dosage: BEVERAGE, INGESTION
     Route: 048
  14. ALCOHOL [Suspect]
     Active Substance: ALCOHOL
     Route: 050
  15. HYDROXYZINE [Suspect]
     Active Substance: HYDROXYZINE HYDROCHLORIDE
     Indication: Product used for unknown indication
     Dosage: INGESTION
     Route: 048
  16. HYDROXYZINE [Suspect]
     Active Substance: HYDROXYZINE HYDROCHLORIDE
     Route: 050
  17. ATORVASTATIN [Suspect]
     Active Substance: ATORVASTATIN
     Indication: Product used for unknown indication
     Dosage: INGESTION
     Route: 048
  18. ATORVASTATIN [Suspect]
     Active Substance: ATORVASTATIN
     Route: 050
  19. POTASSIUM CHLORIDE [Suspect]
     Active Substance: POTASSIUM CHLORIDE
     Indication: Product used for unknown indication
     Dosage: INGESTION
     Route: 048
  20. POTASSIUM CHLORIDE [Suspect]
     Active Substance: POTASSIUM CHLORIDE
     Route: 050
  21. FUROSEMIDE [Suspect]
     Active Substance: FUROSEMIDE
     Indication: Product used for unknown indication
     Dosage: INGESTION
     Route: 048
  22. FUROSEMIDE [Suspect]
     Active Substance: FUROSEMIDE
     Route: 050
  23. APIXABAN [Suspect]
     Active Substance: APIXABAN
     Indication: Product used for unknown indication
     Dosage: INGESTION
     Route: 048
  24. APIXABAN [Suspect]
     Active Substance: APIXABAN
     Route: 050
  25. CANNABIS SATIVA SUBSP. INDICA TOP [Suspect]
     Active Substance: CANNABIS SATIVA SUBSP. INDICA TOP
     Indication: Product used for unknown indication
     Dosage: INGESTION
     Route: 048
  26. CANNABIS SATIVA SUBSP. INDICA TOP [Suspect]
     Active Substance: CANNABIS SATIVA SUBSP. INDICA TOP
     Route: 050

REACTIONS (1)
  - Completed suicide [Fatal]
